FAERS Safety Report 7491722-7 (Version None)
Quarter: 2011Q2

REPORT INFORMATION
  Report Type: 
  Country: None (occurrence: None)
  Receive Date: 20110519
  Receipt Date: 20110504
  Transmission Date: 20111010
  Serious: Yes (Other)
  Sender: FDA-Public Use
  Company Number: US-BAYER-2011-039189

PATIENT
  Sex: Female
  Weight: 45 kg

DRUGS (2)
  1. ASPIRIN [Suspect]
  2. PLAVIX [Concomitant]
     Indication: CEREBROVASCULAR ACCIDENT
     Dosage: QD
     Route: 048

REACTIONS (1)
  - HAEMORRHAGE [None]
